FAERS Safety Report 9922912 (Version 1)
Quarter: 2014Q1

REPORT INFORMATION
  Report Type: Report from Study
  Country: US (occurrence: US)
  Receive Date: 20140225
  Receipt Date: 20140225
  Transmission Date: 20141002
  Serious: Yes (Death)
  Sender: FDA-Public Use
  Company Number: US-BAXTER-2014BAX009768

PATIENT
  Sex: Female

DRUGS (6)
  1. CYCLOPHOSPHAMIDE FOR INJECTION, USP [Suspect]
     Indication: BREAST CANCER
     Dosage: DAY 1
     Route: 042
  2. CYCLOPHOSPHAMIDE FOR INJECTION, USP [Suspect]
     Route: 042
  3. 5-FLUOROURACIL [Suspect]
     Indication: BREAST CANCER
     Dosage: DAY 1 AND 8
     Route: 042
  4. 5-FLUOROURACIL [Suspect]
     Route: 042
  5. METHOTREXATE [Suspect]
     Indication: BREAST CANCER
     Dosage: DAY 1 AND 8
     Route: 042
  6. METHOTREXATE [Suspect]
     Route: 042

REACTIONS (1)
  - Neoplasm progression [Fatal]
